FAERS Safety Report 6430633-2 (Version None)
Quarter: 2009Q4

REPORT INFORMATION
  Report Type: 
  Country: None (occurrence: None)
  Receive Date: 20091106
  Receipt Date: 20091102
  Transmission Date: 20100525
  Serious: Yes (Hospitalization)
  Sender: FDA-Public Use
  Company Number: B0592355B

PATIENT
  Sex: Female
  Weight: 56 kg

DRUGS (3)
  1. LAPATINIB [Suspect]
     Indication: BREAST CANCER
     Dosage: 1000MG PER DAY
     Route: 048
     Dates: start: 20090806, end: 20090924
  2. EPIRUBICIN [Suspect]
     Indication: BREAST CANCER
     Dosage: 30MG EVERY 3 WEEKS
     Route: 042
     Dates: start: 20090806, end: 20090924
  3. CYCLOPHOSPHAMIDE [Suspect]
     Indication: BREAST CANCER
     Dosage: 600MG EVERY 3 WEEKS
     Route: 042
     Dates: start: 20090806, end: 20090924

REACTIONS (2)
  - GASTROENTERITIS [None]
  - PYREXIA [None]
